FAERS Safety Report 21193066 (Version 2)
Quarter: 2023Q1

REPORT INFORMATION
  Report Type: Spontaneous
  Country: BE (occurrence: BE)
  Receive Date: 20220810
  Receipt Date: 20230313
  Transmission Date: 20230418
  Serious: Yes (Other)
  Sender: FDA-Public Use
  Company Number: ALC2022BE003614

PATIENT

DRUGS (1)
  1. FLUORESCEIN SODIUM [Suspect]
     Active Substance: FLUORESCEIN SODIUM
     Indication: Cerebrospinal fluid leakage
     Dosage: 50 MG, ONCE/SINGLE
     Route: 065

REACTIONS (7)
  - Arrhythmia [Recovered/Resolved]
  - Seizure [Recovered/Resolved]
  - Extravasation [Recovered/Resolved]
  - Accidental overdose [Unknown]
  - Hypotension [Recovered/Resolved]
  - Product use in unapproved indication [Unknown]
  - Product use issue [Unknown]
